FAERS Safety Report 24091420 (Version 1)
Quarter: 2024Q3

REPORT INFORMATION
  Report Type: Report from Study
  Country: US (occurrence: US)
  Receive Date: 20240715
  Receipt Date: 20240715
  Transmission Date: 20241016
  Serious: Yes (Other)
  Sender: BIOVITRUM
  Company Number: US-BIOVITRUM-2024-US-008860

PATIENT
  Age: 74 Year
  Sex: Female

DRUGS (1)
  1. DOPTELET [Suspect]
     Active Substance: AVATROMBOPAG MALEATE
     Indication: Immune thrombocytopenia
     Dosage: AS ORDERED 1 TABLET EVERY OTHER DAY FOR 180 DAYS
     Route: 048

REACTIONS (2)
  - Platelet count decreased [Unknown]
  - Drug ineffective [Unknown]
